FAERS Safety Report 18461085 (Version 1)
Quarter: 2020Q4

REPORT INFORMATION
  Report Type: Spontaneous
  Country: NL (occurrence: NL)
  Receive Date: 20201104
  Receipt Date: 20201104
  Transmission Date: 20210114
  Serious: Yes (Life-Threatening)
  Sender: FDA-Public Use
  Company Number: NL-ACCORD-207260

PATIENT
  Age: 57 Year
  Sex: Female
  Weight: 79.1 kg

DRUGS (9)
  1. TOPIRAMATE. [Suspect]
     Active Substance: TOPIRAMATE
     Indication: BIPOLAR DISORDER
     Dosage: 2X PER DAY 3 TABLET
  2. CLONIDINE. [Interacting]
     Active Substance: CLONIDINE
     Indication: HYPERHIDROSIS
     Dosage: STRENGTH:0,025MG,2 DD 2 TABLET
     Dates: end: 20200813
  3. BUPRENORPHINE. [Concomitant]
     Active Substance: BUPRENORPHINE
     Dosage: PLASTER, 15 MICROGRAM PER HOUR
  4. QUETIAPINE/QUETIAPINE FUMARATE [Concomitant]
     Active Substance: QUETIAPINE FUMARATE
     Dosage: STRENGTH:200 MG
  5. MOVICOLON [Concomitant]
     Active Substance: POLYETHYLENE GLYCOL 3350\POTASSIUM CHLORIDE\SODIUM BICARBONATE\SODIUM CHLORIDE
     Dosage: POWDER FOR ORAL SOLUTION
  6. SALBUTAMOL [Concomitant]
     Active Substance: ALBUTEROL
     Dosage: AEROSOL, 100 MCG /DOSE
  7. OMEPRAZOLE. [Concomitant]
     Active Substance: OMEPRAZOLE
     Dosage: STRENGTH:20MG
  8. IRON [Concomitant]
     Active Substance: IRON
     Dosage: STRENGTH:200MG
  9. TEMAZEPAM. [Concomitant]
     Active Substance: TEMAZEPAM
     Dosage: CAPSULE, 10 MG (MILLIGRAM)

REACTIONS (2)
  - Hyperthermia [Recovering/Resolving]
  - Potentiating drug interaction [Unknown]

NARRATIVE: CASE EVENT DATE: 20200813
